FAERS Safety Report 10063797 (Version 4)
Quarter: 2014Q2

REPORT INFORMATION
  Report Type: Spontaneous
  Country: US (occurrence: US)
  Receive Date: 20140408
  Receipt Date: 20140520
  Transmission Date: 20141212
  Serious: Yes (Other)
  Sender: FDA-Public Use
  Company Number: US-AMGEN-USASP2014024415

PATIENT
  Age: 39 Year
  Sex: Male
  Weight: 121 kg

DRUGS (12)
  1. EPOGEN [Suspect]
     Indication: NEPHROGENIC ANAEMIA
     Dosage: 25000 UNIT, THREE TIMES PER WEEK
     Route: 058
     Dates: end: 20140329
  2. ARANESP [Suspect]
     Indication: NEPHROGENIC ANAEMIA
     Dosage: 200 MUG, QWK
     Route: 058
     Dates: start: 20140401, end: 20140514
  3. AMLODIPINE [Concomitant]
     Dosage: 10 MG, QD
     Route: 048
  4. ATORVASTATIN [Concomitant]
     Dosage: 20 MG, QD
     Route: 048
  5. GEMFIBROZIL [Concomitant]
     Dosage: 600 MG, BID
     Route: 048
  6. IRBESARTAN [Concomitant]
     Dosage: 300 MG, QD
     Route: 048
  7. NOVOLOG [Concomitant]
     Indication: TYPE 1 DIABETES MELLITUS
     Dosage: 100 UNIT/ML
  8. OMEPRAZOLE [Concomitant]
     Dosage: 20 MG, QD AS DIRECTED
     Route: 048
  9. PHOSLO [Concomitant]
     Dosage: TAKE 2 CAPSULE THREE TIMES A DAY WITH MEALS TAKE 2 CAPS WITH EACH MEALS AND ONE WITH SNACKS
     Route: 048
  10. VITAMIN D3 [Concomitant]
     Dosage: 2000 UNIT, 1 CAPSULE ONCE A DAY
     Route: 048
  11. VITAMIN B COMPLEX [Concomitant]
     Dosage: UNK
  12. LEVEMIR [Concomitant]
     Indication: TYPE 1 DIABETES MELLITUS
     Dosage: 10 UNIT, BID
     Route: 058

REACTIONS (4)
  - Anaemia [Unknown]
  - Vitamin B12 deficiency [Unknown]
  - Fatigue [Unknown]
  - Drug ineffective [Unknown]
